FAERS Safety Report 7402056-0 (Version None)
Quarter: 2011Q2

REPORT INFORMATION
  Report Type: 
  Country: None (occurrence: None)
  Receive Date: 20110408
  Receipt Date: 20101025
  Transmission Date: 20111010
  Serious: Yes (Hospitalization)
  Sender: FDA-Public Use
  Company Number: US-BAYER-201034731NA

PATIENT
  Age: 23 Year
  Sex: Female
  Weight: 104 kg

DRUGS (8)
  1. OCELLA [Suspect]
  2. METFORMIN HCL [Concomitant]
  3. IBUPROFEN (ADVIL) [Concomitant]
  4. PAXIL [Concomitant]
  5. LAMICTAL [Concomitant]
  6. YAZ [Suspect]
     Indication: PRODUCT USED FOR UNKNOWN INDICATION
     Dosage: UNK
     Dates: start: 20050101, end: 20080101
  7. ASCORBIC ACID [Concomitant]
  8. YASMIN [Suspect]
     Indication: PRODUCT USED FOR UNKNOWN INDICATION
     Dosage: UNK
     Dates: start: 20050101, end: 20080101

REACTIONS (3)
  - CHOLELITHIASIS [None]
  - CHOLECYSTITIS CHRONIC [None]
  - GALLBLADDER DISORDER [None]
